FAERS Safety Report 24223777 (Version 1)
Quarter: 2024Q3

REPORT INFORMATION
  Report Type: Spontaneous
  Country: AU (occurrence: AU)
  Receive Date: 20240819
  Receipt Date: 20240819
  Transmission Date: 20241017
  Serious: Yes (Life-Threatening, Hospitalization, Other)
  Sender: GLAXOSMITHKLINE
  Company Number: AU-GLAXOSMITHKLINE-AU2024APC102078

PATIENT

DRUGS (15)
  1. ALBUTEROL SULFATE [Suspect]
     Active Substance: ALBUTEROL SULFATE
     Indication: Product used for unknown indication
     Dosage: UNK
  2. MONTELUKAST SODIUM [Suspect]
     Active Substance: MONTELUKAST\MONTELUKAST SODIUM
     Indication: Mast cell activation syndrome
     Dosage: 10 MG
  3. COMIRNATY (TOZINAMERAN) [Suspect]
     Active Substance: TOZINAMERAN
     Indication: Product used for unknown indication
     Dosage: INTERVAL: 1 TOTAL
  4. COMIRNATY (TOZINAMERAN) [Suspect]
     Active Substance: TOZINAMERAN
     Indication: COVID-19 immunisation
     Dosage: INTERVAL: 1 TOTAL
  5. NOVORAPID [Suspect]
     Active Substance: INSULIN ASPART
     Indication: Product used for unknown indication
     Dosage: 15 IU, 1D
     Route: 065
  6. ANASTROZOLE [Suspect]
     Active Substance: ANASTROZOLE
     Indication: Breast cancer
     Dosage: 1 MG, QD
  7. APIXABAN [Suspect]
     Active Substance: APIXABAN
     Indication: Product used for unknown indication
     Dosage: 10 MG, QD
  8. ESOMEPRAZOLE [Suspect]
     Active Substance: ESOMEPRAZOLE
     Indication: Product used for unknown indication
     Dosage: 40 MG
  9. FAMOTIDINE [Suspect]
     Active Substance: FAMOTIDINE
     Indication: Mast cell activation syndrome
     Dosage: 40 MG, 1D
  10. INSULIN GLARGINE [Suspect]
     Active Substance: INSULIN GLARGINE
     Indication: Product used for unknown indication
     Dosage: 36 IU, 1D
  11. LORATADINE [Suspect]
     Active Substance: LORATADINE
     Indication: Product used for unknown indication
     Dosage: 10 MG, 1D
  12. LORATADINE [Suspect]
     Active Substance: LORATADINE
     Indication: Mast cell activation syndrome
     Dosage: 40 MG, 1D
  13. METFORMIN HYDROCHLORIDE [Suspect]
     Active Substance: METFORMIN HYDROCHLORIDE
     Indication: Diabetes mellitus
     Dosage: 2 G, 1D
  14. PROMETHAZINE HYDROCHLORIDE [Suspect]
     Active Substance: PROMETHAZINE HYDROCHLORIDE
     Indication: Local reaction
  15. ROSUVASTATIN CALCIUM [Suspect]
     Active Substance: ROSUVASTATIN CALCIUM
     Indication: Product used for unknown indication
     Dosage: UNK

REACTIONS (16)
  - Anaphylactic reaction [Recovering/Resolving]
  - SARS-CoV-2 test positive [Unknown]
  - Obstructive airways disorder [Unknown]
  - Respiratory failure [Unknown]
  - Pneumonia [Unknown]
  - Drug intolerance [Unknown]
  - Dyspnoea [Not Recovered/Not Resolved]
  - Human rhinovirus test positive [Unknown]
  - Mouth haemorrhage [Unknown]
  - Pharyngeal swelling [Not Recovered/Not Resolved]
  - Respiratory syncytial virus test positive [Unknown]
  - Swollen tongue [Not Recovered/Not Resolved]
  - Tongue injury [Unknown]
  - Upper respiratory tract infection [Unknown]
  - Urticaria [Recovering/Resolving]
  - Viral test positive [Unknown]

NARRATIVE: CASE EVENT DATE: 20180718
